FAERS Safety Report 6272139-X (Version None)
Quarter: 2009Q3

REPORT INFORMATION
  Report Type: 
  Country: None (occurrence: None)
  Receive Date: 20090717
  Receipt Date: 20090707
  Transmission Date: 20100115
  Serious: Yes (Hospitalization)
  Sender: FDA-Public Use
  Company Number: FR-PFIZER INC-2009236814

PATIENT
  Age: 21 Year

DRUGS (1)
  1. SALAZOPYRIN [Suspect]
     Indication: SPONDYLOARTHROPATHY
     Dosage: UNK
     Dates: start: 20090416, end: 20090515

REACTIONS (3)
  - AGRANULOCYTOSIS [None]
  - DRUG RASH WITH EOSINOPHILIA AND SYSTEMIC SYMPTOMS [None]
  - FACIAL PALSY [None]
